FAERS Safety Report 10576266 (Version 1)
Quarter: 2014Q4

REPORT INFORMATION
  Report Type: Spontaneous
  Country: IN (occurrence: IN)
  Receive Date: 20141111
  Receipt Date: 20141111
  Transmission Date: 20150529
  Serious: Yes (Hospitalization)
  Sender: FDA-Public Use
  Company Number: IN-SA-2014SA151559

PATIENT
  Age: 65 Year
  Sex: Female

DRUGS (9)
  1. UFTORAL [Suspect]
     Active Substance: TEGAFUR\URACIL
     Indication: RECTAL ADENOCARCINOMA
     Dosage: DOSE: 300 MG/M2/DAY WITH URACIL 672 MG/M2/DAY IN THREE DIVIDED DOSES ON DAYS 1-14; CYCLE 4
     Route: 065
  2. CAPECITABINE. [Suspect]
     Active Substance: CAPECITABINE
     Indication: RECTAL ADENOCARCINOMA
     Dosage: ON DAYS 1-14
     Route: 065
  3. UFTORAL [Suspect]
     Active Substance: TEGAFUR\URACIL
     Indication: RECTAL ADENOCARCINOMA
     Route: 065
  4. OXALIPLATIN. [Suspect]
     Active Substance: OXALIPLATIN
     Indication: RECTAL ADENOCARCINOMA
     Dosage: RECEIVED 4 CYCLES ALONG WITH UFTORAL AND CALCIUM FOLINATE
     Route: 065
  5. CALCIUM FOLINATE [Suspect]
     Active Substance: LEUCOVORIN CALCIUM
     Indication: RECTAL ADENOCARCINOMA
     Dosage: DOSE: 90 MG/DAY IN THREE DIVIDED DOSES ON DAYS 1-14; CYCLE 1 AND 2
     Route: 065
  6. CALCIUM FOLINATE [Suspect]
     Active Substance: LEUCOVORIN CALCIUM
     Indication: RECTAL ADENOCARCINOMA
     Dosage: DOSE: 90 MG/DAY IN THREE DIVIDED DOSES ON DAYS 1-14; CYCLE 3
     Route: 065
  7. UFTORAL [Suspect]
     Active Substance: TEGAFUR\URACIL
     Indication: RECTAL ADENOCARCINOMA
     Route: 065
  8. OXALIPLATIN. [Suspect]
     Active Substance: OXALIPLATIN
     Indication: RECTAL ADENOCARCINOMA
     Route: 065
  9. CALCIUM FOLINATE [Suspect]
     Active Substance: LEUCOVORIN CALCIUM
     Indication: RECTAL ADENOCARCINOMA
     Dosage: DOSE: 90 MG/DAY IN THREE DIVIDED DOSES ON DAYS 1-14; CYCLE 4
     Route: 065

REACTIONS (3)
  - Diarrhoea [Recovering/Resolving]
  - Mucosal inflammation [Recovering/Resolving]
  - Palmar-plantar erythrodysaesthesia syndrome [Recovering/Resolving]
